FAERS Safety Report 5402433-3 (Version None)
Quarter: 2007Q3

REPORT INFORMATION
  Report Type: 
  Country: None (occurrence: None)
  Receive Date: 20070801
  Receipt Date: 20070221
  Transmission Date: 20080115
  Serious: No
  Sender: FDA-Public Use
  Company Number: A0532565A

PATIENT
  Age: 43 Year
  Sex: Female

DRUGS (3)
  1. IMITREX [Suspect]
     Indication: MIGRAINE
     Route: 048
  2. IMITREX [Suspect]
     Route: 045
  3. IMITREX [Suspect]
     Dosage: 6MG VARIABLE DOSE
     Route: 058

REACTIONS (1)
  - DRUG INEFFECTIVE [None]
